FAERS Safety Report 4951692-X (Version None)
Quarter: 2006Q1

REPORT INFORMATION
  Report Type: 
  Country: None (occurrence: None)
  Receive Date: 20060322
  Receipt Date: 20060322
  Transmission Date: 20060701
  Serious: No
  Sender: FDA-Public Use
  Company Number: None

PATIENT
  Age: 7 Year
  Sex: Male
  Weight: 25.1746 kg

DRUGS (1)
  1. PULMICORT [Suspect]
     Indication: ASTHMA
     Dosage: 1 PUFF BID OROPHARINGEAL
     Route: 049
     Dates: start: 20060119, end: 20060214

REACTIONS (4)
  - AGGRESSION [None]
  - ANGER [None]
  - EMOTIONAL DISTRESS [None]
  - IRRITABILITY [None]
